FAERS Safety Report 4707844-7 (Version None)
Quarter: 2005Q3

REPORT INFORMATION
  Report Type: 
  Country: None (occurrence: None)
  Receive Date: 20050705
  Receipt Date: 20050705
  Transmission Date: 20060218
  Serious: Yes (Other)
  Sender: FDA-Public Use
  Company Number: None

PATIENT
  Sex: Female
  Weight: 81.6475 kg

DRUGS (5)
  1. PAROXETINE HCL [Suspect]
     Indication: GENERALISED ANXIETY DISORDER
     Dosage: 20MG  DAY  ORAL;  10MG   DAY  ORAL
     Route: 048
     Dates: start: 20020324, end: 20040227
  2. PAROXETINE HCL [Suspect]
     Indication: GENERALISED ANXIETY DISORDER
     Dosage: 20MG  DAY  ORAL;  10MG   DAY  ORAL
     Route: 048
     Dates: start: 20040928, end: 20050727
  3. VITAMIN B COMPLEX CAP [Concomitant]
  4. EVENING PRIMROSE OIL [Concomitant]
  5. MULTI-VITAMIN [Concomitant]

REACTIONS (3)
  - DYSKINESIA [None]
  - MUSCLE TWITCHING [None]
  - RESTLESS LEGS SYNDROME [None]
